FAERS Safety Report 22942645 (Version 3)
Quarter: 2023Q4

REPORT INFORMATION
  Report Type: Report from Study
  Country: CN (occurrence: CN)
  Receive Date: 20230914
  Receipt Date: 20231030
  Transmission Date: 20240109
  Serious: Yes (Hospitalization, Other)
  Sender: FDA-Public Use
  Company Number: CN-TAKEDA-2023TUS088356

PATIENT
  Age: 31 Year
  Sex: Male
  Weight: 61 kg

DRUGS (5)
  1. VEDOLIZUMAB [Suspect]
     Active Substance: VEDOLIZUMAB
     Indication: Colitis ulcerative
     Dosage: 300 MILLIGRAM
     Route: 042
     Dates: start: 20230131
  2. Live combined bacillus subtilis and enterococcus faecium [Concomitant]
     Indication: Dysbiosis
     Dosage: 250 MILLIGRAM, TID
     Route: 048
     Dates: start: 2020, end: 20230910
  3. Live combined bacillus subtilis and enterococcus faecium [Concomitant]
     Dosage: 500 MILLIGRAM, TID
     Route: 048
     Dates: start: 20230911
  4. DEXTROSE [Concomitant]
     Active Substance: DEXTROSE\DEXTROSE MONOHYDRATE
     Indication: Fluid replacement
     Dosage: 500 MILLILITER, QD
     Route: 042
     Dates: start: 20230529, end: 20230531
  5. DEXTROSE\SODIUM CHLORIDE [Concomitant]
     Active Substance: DEXTROSE\SODIUM CHLORIDE
     Indication: Fluid replacement
     Dosage: 500 MILLILITER, QD
     Route: 042
     Dates: start: 20230529, end: 20230530

REACTIONS (1)
  - Appendicitis [Recovered/Resolved]

NARRATIVE: CASE EVENT DATE: 20230528
